FAERS Safety Report 21684201 (Version 1)
Quarter: 2022Q4

REPORT INFORMATION
  Report Type: Spontaneous
  Country: US (occurrence: None)
  Receive Date: 20221202
  Receipt Date: 20221202
  Transmission Date: 20230113
  Serious: Yes (Other)
  Sender: FDA-Public Use
  Company Number: None

PATIENT
  Sex: Male

DRUGS (1)
  1. PIRFENIDONE [Suspect]
     Active Substance: PIRFENIDONE
     Indication: Idiopathic pulmonary fibrosis
     Dosage: FREQUENCY : 3 TIMES A DAY; WITH MEALS?
     Route: 048
     Dates: start: 20220615

REACTIONS (3)
  - Fatigue [None]
  - Prostatic operation [None]
  - Gallbladder operation [None]
